FAERS Safety Report 19032042 (Version 1)
Quarter: 2021Q1

REPORT INFORMATION
  Report Type: Report from Study
  Country: US (occurrence: US)
  Receive Date: 20210319
  Receipt Date: 20210319
  Transmission Date: 20210420
  Serious: Yes (Other)
  Sender: FDA-Public Use
  Company Number: US-TAKEDA-US202022081

PATIENT
  Sex: Female

DRUGS (2)
  1. GAMMAGARD LIQUID [Suspect]
     Active Substance: HUMAN IMMUNOGLOBULIN G
     Dosage: 20 GRAMS OVER TWO DAYS
     Route: 065
  2. GAMMAGARD LIQUID [Suspect]
     Active Substance: HUMAN IMMUNOGLOBULIN G
     Indication: IMMUNODEFICIENCY COMMON VARIABLE
     Dosage: UNK, UNKNOWN
     Route: 058

REACTIONS (7)
  - Urinary tract infection [Unknown]
  - Fatigue [Not Recovered/Not Resolved]
  - Nephrolithiasis [Unknown]
  - Tooth infection [Unknown]
  - Bronchitis [Recovering/Resolving]
  - Hypersomnia [Not Recovered/Not Resolved]
  - Illness [Unknown]
